FAERS Safety Report 9877727 (Version 1)
Quarter: 2014Q1

REPORT INFORMATION
  Report Type: Spontaneous
  Country: AT (occurrence: AT)
  Receive Date: 20140206
  Receipt Date: 20140206
  Transmission Date: 20141002
  Serious: Yes (Other)
  Sender: FDA-Public Use
  Company Number: PHHY2014AT013341

PATIENT
  Sex: Female
  Weight: 1.35 kg

DRUGS (7)
  1. CICLOSPORIN [Suspect]
     Route: 064
  2. PREDNISOLONE [Suspect]
     Route: 064
  3. METHYLDOPA [Suspect]
     Route: 064
  4. METOPROLOL [Suspect]
     Route: 064
  5. DIHYDRALAZINE SULFATE [Suspect]
     Route: 064
  6. METHYLPREDNISOLONE [Suspect]
     Route: 064
  7. AZATHIOPRINE [Suspect]
     Route: 064

REACTIONS (4)
  - Premature baby [Unknown]
  - Low birth weight baby [Unknown]
  - Foetal growth restriction [Unknown]
  - Foetal exposure during pregnancy [Unknown]
